FAERS Safety Report 5694955-5 (Version None)
Quarter: 2008Q2

REPORT INFORMATION
  Report Type: 
  Country: None (occurrence: None)
  Receive Date: 20080404
  Receipt Date: 20080321
  Transmission Date: 20081010
  Serious: Yes (Other)
  Sender: FDA-Public Use
  Company Number: PHHY2008JP03296

PATIENT
  Age: 72 Year
  Sex: Male

DRUGS (1)
  1. TEGRETOL [Suspect]
     Indication: TRIGEMINAL NEURALGIA
     Dosage: 300 MG/DAY
     Route: 048
     Dates: start: 20040101

REACTIONS (12)
  - BLOOD CORTICOTROPHIN ABNORMAL [None]
  - BLOOD CORTISOL INCREASED [None]
  - BONE DENSITY DECREASED [None]
  - BONE METABOLISM DISORDER [None]
  - HYPOCALCAEMIA [None]
  - HYPOPHOSPHATAEMIA [None]
  - HYPOTHALAMO-PITUITARY DISORDER [None]
  - HYPOTHYROIDISM [None]
  - THYROID FUNCTION TEST ABNORMAL [None]
  - THYROXINE DECREASED [None]
  - TRI-IODOTHYRONINE DECREASED [None]
  - VITAMIN D DEFICIENCY [None]
